FAERS Safety Report 17104555 (Version 1)
Quarter: 2019Q4

REPORT INFORMATION
  Report Type: Spontaneous
  Country: US (occurrence: US)
  Receive Date: 20191107
  Receipt Date: 20191107
  Transmission Date: 20200122
  Serious: No
  Sender: FDA-Public Use
  Company Number: None

PATIENT
  Age: 51 Year
  Sex: Female

DRUGS (1)
  1. GLATIRAMER 40MG PFS INJ  (12/BOX) [Suspect]
     Active Substance: GLATIRAMER
     Indication: MULTIPLE SCLEROSIS
     Dosage: ?          OTHER FREQUENCY:UNKNOWN;?
     Route: 058
     Dates: start: 201901

REACTIONS (6)
  - Ankyloglossia acquired [None]
  - Feeling hot [None]
  - Flushing [None]
  - Dyspnoea [None]
  - Condition aggravated [None]
  - Diarrhoea [None]

NARRATIVE: CASE EVENT DATE: 20191107
